FAERS Safety Report 9412214 (Version 1)
Quarter: 2013Q2

REPORT INFORMATION
  Report Type: Spontaneous
  Country: CN (occurrence: None)
  Receive Date: 20130416
  Receipt Date: 20130416
  Transmission Date: 20140414
  Serious: Yes (Hospitalization)
  Sender: FDA-Public Use
  Company Number: SYM-2013-01604

PATIENT
  Age: 46 Year
  Sex: Male

DRUGS (27)
  1. 5-FU [Suspect]
     Indication: COLORECTAL CANCER METASTATIC
     Route: 040
     Dates: start: 20120927, end: 20120927
  2. BLINDED THERAPY (OTHER THERAPEUTIC PRODUCTS) (SOLUTION FOR INFUSION) (NULL) [Suspect]
     Indication: COLORECTAL CANCER METASTATIC
     Dosage: INTRAVENOUS (NOT OTHERWISE SPECIFIED)
     Route: 042
     Dates: start: 20120927, end: 20120927
  3. IRINOTECAN (IRINOTECAN) (SOLUTION FOR INFUSION) (IRINOTECAN) [Suspect]
     Indication: COLORECTAL CANCER METASTATIC
     Dosage: INTRAVENOUS (NOT OTHERWISE SPECIFIED)
     Route: 042
     Dates: start: 20120927, end: 20120927
  4. LEUCOVORIN [Suspect]
     Indication: COLORECTAL CANCER METASTATIC
     Dosage: INTRAVENOUS (NOT OTHERWISE SPECIFIED)
     Route: 042
     Dates: start: 20120927, end: 20120927
  5. DEXAMETHASONE SODIUM PHOSPHATE (DEXAMETHASONE SODIUM PHOSPHATE) (UNKNOWN) (DEXAMETHASONE SODIUM PHOSPHATE) [Concomitant]
     Dates: start: 20121228, end: 20121228
  6. HYOSCYAMINE (HYOSCYAMINE) (UNKNOWN) (HYOSCYAMINE) [Concomitant]
  7. POTASSIUM CHLORIDE (POTASSIUM CHLORIDE) (UNKNOWN) (POTASSIUM CHLORIDE) [Concomitant]
  8. MOSAPRIDE CITRATE (MOSAPRIDE CITRATE) (UNKNOWN) (MOSAPRIDE CITRATE) [Concomitant]
  9. DEXAMETHASONE (DEXAMETHASONE) (UNKNOWN) (DEXAMETHASONE) [Concomitant]
  10. LYSINE ASPIRIN (ACETYLSALICYLATE LYSINE) (UNKNOWN) (ACETYLSALICYLATE LYSINE) [Concomitant]
  11. POTASSIUM CHLORIDE (POTASSIUM CHLORIDE) (UNKNOWN) (POTASSIUM CHLORIDE) [Concomitant]
  12. ACETAMINOPHEN W/OXYCODONE (OXYCOCET) (UNKNOWN) (PARACETAMOL, OXYCODONE HYDROCHLORIDE) [Concomitant]
  13. G-CSF (GRANULOCYTE COLONY STIMULATING FACTOR) (UNKNOWN) (GRANULOCYTE COLONY STIMULATING FACTOR) [Concomitant]
  14. ATROPINE (ATROPINE) (UNKNOWN) (ATROPINE) [Concomitant]
  15. MULTIVITAMINS (MULTIVITAMINS) (UNKNOWN) (ERGOCALCIFEROL, ASCORBIC ACID, FOLIC ACID, THIAMINE HYDROCHLORIDE, RETINOL, RIBOFLAVIN, NICOTINAMIDE, PANTHENOL) [Concomitant]
  16. ASPARTATE POTASSIUM/MAGNESIUM ASPARTATE (TROPHICARD) (UNKNOWN) (POTASSIUM ASPARTATE, NAGNESIUM ASPARTATE) [Concomitant]
  17. INVERT SUGAR (INVERT SUGAR) (UNKNOWN) (INVERT SUGAR) [Concomitant]
  18. HUMAN GROWTH HORMONE (SOMATROPIN) (UNKNOWN) (SOMATROPIN) [Concomitant]
  19. HEPARIN-FRACTION (HEPARIN-FRACTION) (UNKNOWN) (HEPARIN-FRACTION) [Concomitant]
  20. LEUCOGEN (LEUCOGEN) (UNKNOWN) (LEUCOGEN) [Concomitant]
  21. SUCCINIC ACID (SUCCINIC ACID) (UNKNOWN) (SUCCINIC ACID) [Concomitant]
  22. GLUTATHIONE (GLUTATHIONE) (UNKNOWN) (GLUTATHIONE) [Concomitant]
  23. LEVOFLOXACIN (LEVOFLOXACIN) (UNKNOWN) (LEVOFLOXACIN) [Concomitant]
  24. GRANISETRON (GRANISETRON) (UNKNOWN) (GRANISETRON) [Concomitant]
  25. LANSOPRAZOLE (LANSOPRAZOLE) (UNKNOWN) (LANSOPRAZOLE) [Concomitant]
  26. GLYCYRRHIZIC ACID (GLYCYRRHIZIC ACID) (UNKNOWN) (GLYCYRRHIZIC ACID0 [Concomitant]
  27. THROMBIN (THROMBIN) [Concomitant]

REACTIONS (2)
  - Abdominal distension [None]
  - Intestinal obstruction [None]
